FAERS Safety Report 5970869-8 (Version None)
Quarter: 2008Q4

REPORT INFORMATION
  Report Type: 
  Country: None (occurrence: None)
  Receive Date: 20081128
  Receipt Date: 20081113
  Transmission Date: 20090506
  Serious: Yes (Hospitalization)
  Sender: FDA-Public Use
  Company Number: PHHY2008BE23937

PATIENT
  Sex: Female

DRUGS (5)
  1. VAA489A VAL_AML+TAB [Suspect]
     Indication: HYPERTENSION
     Dosage: 5/ 160 MG
  2. VOLTAREN [Suspect]
     Indication: ARTHRITIS
     Dosage: UNK
     Dates: start: 20080701
  3. VOLTAREN [Suspect]
     Indication: GOUT
  4. SARTAN [Concomitant]
  5. MICARDIS [Concomitant]
     Dosage: 80 MG, UNK

REACTIONS (3)
  - DIARRHOEA HAEMORRHAGIC [None]
  - DIVERTICULITIS [None]
  - PYREXIA [None]
